FAERS Safety Report 9613573 (Version 2)
Quarter: 2013Q4

REPORT INFORMATION
  Report Type: Spontaneous
  Country: BR (occurrence: BR)
  Receive Date: 20131010
  Receipt Date: 20131010
  Transmission Date: 20140711
  Serious: Yes (Other)
  Sender: FDA-Public Use
  Company Number: BR-ROCHE-1139520

PATIENT
  Sex: Female

DRUGS (6)
  1. XOLAIR [Suspect]
     Indication: PRODUCT USED FOR UNKNOWN INDICATION
     Dosage: LAST APPLICATION WAS ON 11 SEP (YEAR UNSPECIFIED)
     Route: 065
     Dates: start: 2007
  2. XOLAIR [Suspect]
     Route: 065
  3. LEVODOPA [Concomitant]
  4. OMEPRAZOLE [Concomitant]
  5. CAPTOPRIL [Concomitant]
  6. HIDROCHLOROTHIAZIDE [Concomitant]

REACTIONS (17)
  - Upper limb fracture [Not Recovered/Not Resolved]
  - Pneumonia [Unknown]
  - Wrist fracture [Recovered/Resolved]
  - Asthmatic crisis [Recovered/Resolved]
  - Malaise [Not Recovered/Not Resolved]
  - Influenza [Recovered/Resolved]
  - Fall [Recovered/Resolved]
  - Arthritis [Unknown]
  - Back pain [Unknown]
  - Vitamin D deficiency [Recovered/Resolved]
  - Feeling abnormal [Unknown]
  - Abdominal pain upper [Unknown]
  - Wound [Unknown]
  - Swelling [Recovered/Resolved]
  - Pruritus [Unknown]
  - Malaise [Unknown]
  - Hypersensitivity [Unknown]
